FAERS Safety Report 9383439 (Version 1)
Quarter: 2013Q3

REPORT INFORMATION
  Report Type: Report from Study
  Country: JP (occurrence: JP)
  Receive Date: 20130704
  Receipt Date: 20130704
  Transmission Date: 20140515
  Serious: Yes (Other)
  Sender: FDA-Public Use
  Company Number: JP-009507513-1307JPN002057

PATIENT
  Age: 74 Year
  Sex: Female
  Weight: 57 kg

DRUGS (16)
  1. PEGINTRON [Suspect]
     Indication: CHRONIC HEPATITIS C
     Dosage: 1.35 MICROGRAM PER KILOGRAM, QW
     Route: 058
     Dates: start: 20120905
  2. REBETOL [Suspect]
     Indication: CHRONIC HEPATITIS C
     Dosage: 400 MG, QD
     Route: 048
     Dates: start: 20120905, end: 20120925
  3. REBETOL [Suspect]
     Dosage: 200 MG, QD
     Route: 048
     Dates: start: 20120926, end: 20121008
  4. REBETOL [Suspect]
     Dosage: 2 DF, QW
     Route: 048
     Dates: start: 20121009, end: 20121030
  5. REBETOL [Suspect]
     Dosage: 2 DF, QW
     Dates: start: 20121120
  6. TELAVIC [Suspect]
     Indication: CHRONIC HEPATITIS C
     Dosage: 1500 MG, QD
     Route: 048
     Dates: start: 20120905, end: 20121008
  7. TELAVIC [Suspect]
     Dosage: 750 MG, QD
     Route: 048
     Dates: start: 20121009, end: 20121030
  8. AMLODIPINE TOWA [Concomitant]
     Indication: HYPERTENSION
     Dosage: 5 MG, QD
     Route: 048
     Dates: end: 20120911
  9. AMLODIPINE TOWA [Concomitant]
     Dosage: 2.5 MG, QD
     Route: 048
     Dates: start: 20120912
  10. OLMETEC [Concomitant]
     Indication: HYPERTENSION
     Dosage: 20 MG, QD
     Route: 048
  11. SENNOSIDES [Concomitant]
     Indication: CONSTIPATION
     Dosage: 24 MG/DAY, PRN
     Route: 048
  12. SENNOSIDES [Concomitant]
     Dosage: 24 MG, QD
     Route: 048
  13. CALONAL [Concomitant]
     Indication: PROPHYLAXIS
     Dosage: 400 MG, QD
     Route: 048
     Dates: start: 20120906, end: 20130121
  14. ALLOPURINOL [Concomitant]
     Indication: HYPERURICAEMIA
     Dosage: 100 MG, QD
     Route: 048
     Dates: start: 20120907, end: 20121030
  15. PATANOL [Concomitant]
     Indication: PROPHYLAXIS
     Dosage: 4 DROPS (FOR BOTH EYES)
     Route: 031
     Dates: start: 20121002
  16. PRIMPERAN [Concomitant]
     Indication: PROPHYLAXIS
     Dosage: 15 MG, QD
     Route: 048
     Dates: end: 20130114

REACTIONS (2)
  - Erythema [Recovered/Resolved]
  - Renal impairment [Recovered/Resolved]
